FAERS Safety Report 5542210-6 (Version None)
Quarter: 2007Q4

REPORT INFORMATION
  Report Type: 
  Country: None (occurrence: None)
  Receive Date: 20071129
  Receipt Date: 20070410
  Transmission Date: 20080405
  Serious: Yes (Other)
  Sender: FDA-Public Use
  Company Number: US200704002132

PATIENT
  Age: 42 Year
  Sex: Male
  Weight: 100.2 kg

DRUGS (5)
  1. ZYPREXA [Suspect]
     Indication: BIPOLAR I DISORDER
     Dosage: ORAL : 7.5 MG, DAILY (1/D), ORAL : 5 MG, QOD, ORAL : 2.5 MG, QOD, ORAL
     Route: 048
     Dates: start: 19981201
  2. PRAZOSIN HCL [Concomitant]
  3. ATENOLOL [Concomitant]
  4. TRIAMTERENE [Concomitant]
  5. ALLOPURINOL [Concomitant]

REACTIONS (7)
  - BLOOD GLUCOSE FLUCTUATION [None]
  - BLOOD KETONE BODY [None]
  - DIABETES MELLITUS [None]
  - FATIGUE [None]
  - HYPERSOMNIA [None]
  - HYPOKALAEMIA [None]
  - SYNCOPE [None]
